FAERS Safety Report 9443392 (Version 1)
Quarter: 2013Q3

REPORT INFORMATION
  Report Type: Spontaneous
  Country: JP (occurrence: JP)
  Receive Date: 20130806
  Receipt Date: 20130806
  Transmission Date: 20140515
  Serious: Yes (Hospitalization)
  Sender: FDA-Public Use
  Company Number: PHHY2013JP079816

PATIENT
  Age: 76 Year
  Sex: Female
  Weight: 46 kg

DRUGS (1)
  1. NEORAL [Suspect]
     Indication: FOCAL SEGMENTAL GLOMERULOSCLEROSIS
     Dosage: 200 MG, DAILY
     Route: 048
     Dates: start: 2012

REACTIONS (3)
  - Blood pressure decreased [Recovered/Resolved]
  - Sepsis [Recovered/Resolved]
  - Urinary tract infection [Recovered/Resolved]
